FAERS Safety Report 20725564 (Version 1)
Quarter: 2022Q2

REPORT INFORMATION
  Report Type: Spontaneous
  Country: US (occurrence: US)
  Receive Date: 20220419
  Receipt Date: 20220419
  Transmission Date: 20220721
  Serious: No
  Sender: FDA-Public Use
  Company Number: US-PFIZER INC-202101340986

PATIENT
  Age: 94 Year
  Sex: Female

DRUGS (2)
  1. IBRANCE [Suspect]
     Active Substance: PALBOCICLIB
     Dosage: 100 MG
     Dates: start: 20210601
  2. IBRANCE [Suspect]
     Active Substance: PALBOCICLIB
     Dosage: 100 MG
     Dates: start: 20210713

REACTIONS (7)
  - Product dose omission issue [Unknown]
  - Dizziness [Unknown]
  - Paraesthesia [Unknown]
  - Contusion [Unknown]
  - Asthenia [Unknown]
  - Faeces discoloured [Unknown]
  - Dizziness [Unknown]

NARRATIVE: CASE EVENT DATE: 20210701
